FAERS Safety Report 7587631-5 (Version None)
Quarter: 2011Q3

REPORT INFORMATION
  Report Type: 
  Country: None (occurrence: None)
  Receive Date: 20110704
  Receipt Date: 20110623
  Transmission Date: 20111222
  Serious: Yes (Life-Threatening, Hospitalization, Other)
  Sender: FDA-Public Use
  Company Number: PHFR2011GB03582

PATIENT
  Sex: Male

DRUGS (1)
  1. CLOZAPINE [Suspect]
     Indication: SCHIZOPHRENIA
     Dosage: 400 MG,
     Route: 048
     Dates: start: 20021111

REACTIONS (5)
  - DIABETES MELLITUS INADEQUATE CONTROL [None]
  - SOFT TISSUE NECROSIS [None]
  - LOCALISED INFECTION [None]
  - DIABETES MELLITUS [None]
  - GANGRENE [None]
